FAERS Safety Report 6744941-9 (Version None)
Quarter: 2010Q2

REPORT INFORMATION
  Report Type: 
  Country: None (occurrence: None)
  Receive Date: 20100527
  Receipt Date: 20100519
  Transmission Date: 20101027
  Serious: Yes (Disabling)
  Sender: FDA-Public Use
  Company Number: MT-AMGEN-US396124

PATIENT
  Age: 5 Year
  Sex: Female
  Weight: 30 kg

DRUGS (2)
  1. ENBREL [Suspect]
     Indication: JUVENILE ARTHRITIS
     Route: 058
     Dates: start: 20090704
  2. METHOTREXATE [Concomitant]

REACTIONS (1)
  - UVEITIS [None]
